FAERS Safety Report 9373818 (Version 2)
Quarter: 2013Q3

REPORT INFORMATION
  Report Type: Spontaneous
  Country: JP (occurrence: JP)
  Receive Date: 20130628
  Receipt Date: 20130903
  Transmission Date: 20140515
  Serious: Yes (Hospitalization)
  Sender: FDA-Public Use
  Company Number: JP-ROCHE-1239416

PATIENT
  Age: 63 Year
  Sex: Male
  Weight: 53 kg

DRUGS (9)
  1. AVASTIN [Suspect]
     Indication: COLON CANCER RECURRENT
     Route: 041
     Dates: start: 20080111, end: 20080715
  2. AVASTIN [Suspect]
     Indication: COLON CANCER RECURRENT
     Route: 041
     Dates: start: 20121214, end: 20130419
  3. XELODA [Suspect]
     Indication: COLON CANCER RECURRENT
     Dosage: 14 TIMES/THREE WEEKS
     Route: 048
     Dates: start: 20121019, end: 20121101
  4. ELPLAT [Suspect]
     Indication: COLON CANCER RECURRENT
     Route: 041
     Dates: start: 20080111, end: 20130419
  5. 5-FU [Suspect]
     Indication: COLON CANCER RECURRENT
     Route: 041
     Dates: start: 20080111, end: 20130419
  6. 5-FU [Suspect]
     Indication: COLON CANCER RECURRENT
     Route: 041
     Dates: start: 20080111, end: 20130419
  7. LEVOFOLINATE [Concomitant]
     Indication: COLON CANCER RECURRENT
     Route: 041
     Dates: start: 20080111, end: 20130419
  8. PYRIDOXAL PHOSPHATE [Concomitant]
     Indication: NEUROPATHY PERIPHERAL
     Dosage: DRUG REPORTED AS PYRIDOXAL PHOSPHATE HYDRATE
     Route: 048
     Dates: start: 20080222
  9. OLMETEC [Concomitant]
     Indication: HYPERTENSION
     Route: 048
     Dates: start: 20120612

REACTIONS (4)
  - Interstitial lung disease [Recovering/Resolving]
  - Neuropathy peripheral [Not Recovered/Not Resolved]
  - Constipation [Not Recovered/Not Resolved]
  - Hypertension [Not Recovered/Not Resolved]
